FAERS Safety Report 13451047 (Version 1)
Quarter: 2017Q2

REPORT INFORMATION
  Report Type: Spontaneous
  Country: US (occurrence: US)
  Receive Date: 20170417
  Receipt Date: 20170417
  Transmission Date: 20170830
  Serious: Yes (Death, Life-Threatening, Hospitalization, Disabling, Other)
  Sender: FDA-Public Use
  Company Number: None

PATIENT
  Age: 20 Year
  Sex: Male
  Weight: 84.15 kg

DRUGS (5)
  1. OLANZAPINE. [Suspect]
     Active Substance: OLANZAPINE
  2. BENZTROPINE [Concomitant]
     Active Substance: BENZTROPINE
  3. SEROQUEL [Concomitant]
     Active Substance: QUETIAPINE FUMARATE
  4. FLUPENAZINE [Concomitant]
  5. PREVACID [Concomitant]
     Active Substance: LANSOPRAZOLE

REACTIONS (5)
  - Insomnia [None]
  - Musculoskeletal stiffness [None]
  - Nightmare [None]
  - Hypertension [None]
  - Nervous system disorder [None]

NARRATIVE: CASE EVENT DATE: 20160201
